FAERS Safety Report 6317927-6 (Version None)
Quarter: 2009Q3

REPORT INFORMATION
  Report Type: 
  Country: None (occurrence: None)
  Receive Date: 20090820
  Receipt Date: 20090820
  Transmission Date: 20100115
  Serious: Yes (Life-Threatening, Hospitalization)
  Sender: FDA-Public Use
  Company Number: None

PATIENT
  Age: 27 Year
  Sex: Female
  Weight: 108.8633 kg

DRUGS (1)
  1. OCELLA 3 MG [Suspect]
     Indication: MENSTRUATION IRREGULAR
     Dosage: 1 DAY, DAILY
     Dates: start: 20070301, end: 20090729

REACTIONS (2)
  - DYSPNOEA [None]
  - PAIN IN EXTREMITY [None]
